FAERS Safety Report 13611293 (Version 4)
Quarter: 2017Q3

REPORT INFORMATION
  Report Type: Spontaneous
  Country: CA (occurrence: CA)
  Receive Date: 20170605
  Receipt Date: 20170822
  Transmission Date: 20171127
  Serious: Yes (Hospitalization)
  Sender: FDA-Public Use
  Company Number: CA-CELLTRION HEALTHCARE JAPAN K.K.-2017CA005111

PATIENT

DRUGS (3)
  1. INFLECTRA [Suspect]
     Active Substance: INFLIXIMAB-DYYB
     Indication: COLITIS ULCERATIVE
     Dosage: 5 MG/KG, 400 MG EVERY 6 WEEKS THEN EVERY 8 WEEKS
     Route: 042
     Dates: start: 20170226, end: 2017
  2. PREDNISONE. [Suspect]
     Active Substance: PREDNISONE
     Dosage: 40 MG, (TAPERING DOSE)
     Route: 042
  3. PREDNISONE. [Suspect]
     Active Substance: PREDNISONE
     Indication: PRODUCT USED FOR UNKNOWN INDICATION
     Dosage: UNK MG, UNK
     Route: 042

REACTIONS (3)
  - Back pain [Not Recovered/Not Resolved]
  - Drug ineffective [Unknown]
  - Muscle spasms [Recovered/Resolved]
